FAERS Safety Report 11060793 (Version 1)
Quarter: 2015Q2

REPORT INFORMATION
  Report Type: Report from Study
  Country: AU (occurrence: AU)
  Receive Date: 20150423
  Receipt Date: 20150423
  Transmission Date: 20150821
  Serious: Yes (Hospitalization, Other)
  Sender: FDA-Public Use
  Company Number: AU-BRISTOL-MYERS SQUIBB COMPANY-15542673

PATIENT
  Age: 72 Year
  Sex: Male

DRUGS (4)
  1. BETNOVATE [Concomitant]
     Active Substance: BETAMETHASONE
     Indication: RASH
     Dosage: .1 %, UNK
     Route: 065
     Dates: start: 20101223, end: 20110301
  2. IPILIMUMAB [Suspect]
     Active Substance: IPILIMUMAB
     Indication: PROSTATE CANCER
     Dosage: 10MG/KG
     Route: 042
     Dates: start: 20101215, end: 20110125
  3. ZOLADEX [Concomitant]
     Active Substance: GOSERELIN ACETATE
     Indication: PROSTATE CANCER
     Dosage: 3.6 MG, QMO
     Route: 065
     Dates: start: 200807
  4. CALCIUM + VITAMIN D [Concomitant]
     Active Substance: CALCIUM\VITAMIN D
     Indication: MINERAL SUPPLEMENTATION
     Dosage: 1 DF : 1 TAB
     Route: 065
     Dates: start: 200807

REACTIONS (2)
  - Haemorrhoids [Recovered/Resolved]
  - Diarrhoea [Recovered/Resolved]

NARRATIVE: CASE EVENT DATE: 20110205
